FAERS Safety Report 9943132 (Version 1)
Quarter: 2014Q1

REPORT INFORMATION
  Report Type: Spontaneous
  Country: EC (occurrence: EC)
  Receive Date: 20140303
  Receipt Date: 20140303
  Transmission Date: 20141002
  Serious: Yes (Other)
  Sender: FDA-Public Use
  Company Number: EC-GLAXOSMITHKLINE-A1057727A

PATIENT
  Age: 23 Year
  Sex: Female

DRUGS (1)
  1. LAMICTAL [Suspect]
     Indication: BIPOLAR DISORDER
     Dosage: 25MG PER DAY
     Route: 048

REACTIONS (2)
  - Bipolar disorder [Unknown]
  - Exposure during pregnancy [Unknown]
